FAERS Safety Report 8156467-9 (Version None)
Quarter: 2012Q1

REPORT INFORMATION
  Report Type: 
  Country: None (occurrence: None)
  Receive Date: 20120216
  Receipt Date: 20120206
  Transmission Date: 20120608
  Serious: Yes (Other)
  Sender: FDA-Public Use
  Company Number: GGEL20120200123

PATIENT
  Age: 86 Year
  Sex: Male

DRUGS (1)
  1. TRIMETHOPRIM + SULFAMETHOXAZOLE [Suspect]
     Indication: PRODUCT USED FOR UNKNOWN INDICATION
     Dosage: 160/800 MILLIGRAM, 1 IN 2 D, ORAL
     Route: 048

REACTIONS (1)
  - HYPONATRAEMIA [None]
